FAERS Safety Report 4940115-2 (Version None)
Quarter: 2006Q1

REPORT INFORMATION
  Report Type: 
  Country: None (occurrence: None)
  Receive Date: 20060310
  Receipt Date: 20060124
  Transmission Date: 20060701
  Serious: Yes (Death)
  Sender: FDA-Public Use
  Company Number: 2006AC00166

PATIENT
  Age: 63 Year
  Sex: Male
  Weight: 70 kg

DRUGS (2)
  1. PROPOFOL [Suspect]
     Indication: STATUS EPILEPTICUS
     Route: 042
  2. FOSPHENYTOIN SODIUM [Concomitant]
     Indication: GRAND MAL CONVULSION

REACTIONS (3)
  - HYPOTENSION [None]
  - METABOLIC ACIDOSIS [None]
  - RHABDOMYOLYSIS [None]
